FAERS Safety Report 8890174 (Version 2)
Quarter: 2012Q4

REPORT INFORMATION
  Report Type: 
  Country: BR (occurrence: BR)
  Receive Date: 20121107
  Receipt Date: 20121207
  Transmission Date: 20130627
  Serious: Yes (Hospitalization, Other)
  Sender: FDA-Public Use
  Company Number: BR-JNJFOC-20121100764

PATIENT
  Age: 82 Year
  Sex: Female
  Weight: 75 kg

DRUGS (2)
  1. REMINYL ER [Suspect]
     Indication: DEMENTIA WITH LEWY BODIES
     Dosage: in morning, afternoon and night
     Route: 048
     Dates: start: 201208
  2. MULTIPLE OTHER MEDICATIONS [Concomitant]
     Indication: PRODUCT USED FOR UNKNOWN INDICATION
     Route: 065

REACTIONS (5)
  - Hospitalisation [Recovered/Resolved]
  - Prescribed overdose [Not Recovered/Not Resolved]
  - Drug prescribing error [Not Recovered/Not Resolved]
  - Incorrect route of drug administration [Not Recovered/Not Resolved]
  - Off label use [Not Recovered/Not Resolved]
